FAERS Safety Report 8622680-7 (Version None)
Quarter: 2012Q3

REPORT INFORMATION
  Report Type: 
  Country: None (occurrence: None)
  Receive Date: 20120827
  Receipt Date: 20120820
  Transmission Date: 20120928
  Serious: Yes (Life-Threatening, Hospitalization)
  Sender: FDA-Public Use
  Company Number: CA-JNJFOC-20120810477

PATIENT
  Sex: Female
  Weight: 52.7 kg

DRUGS (2)
  1. REMICADE [Suspect]
     Indication: CROHN'S DISEASE
     Route: 042
     Dates: start: 20120403, end: 20120410
  2. REMICADE [Suspect]
     Route: 042

REACTIONS (2)
  - LOSS OF CONSCIOUSNESS [None]
  - MATERNAL EXPOSURE DURING PREGNANCY [None]
